FAERS Safety Report 23197077 (Version 1)
Quarter: 2023Q4

REPORT INFORMATION
  Report Type: Spontaneous
  Country: US (occurrence: US)
  Receive Date: 20231117
  Receipt Date: 20231117
  Transmission Date: 20240110
  Serious: Yes (Other)
  Sender: FDA-Public Use
  Company Number: US-GLAXOSMITHKLINE-US2023AMR156560

PATIENT

DRUGS (2)
  1. WELLBUTRIN [Suspect]
     Active Substance: BUPROPION HYDROCHLORIDE
     Indication: Product used for unknown indication
     Dosage: UNK
  2. GATTEX [Suspect]
     Active Substance: TEDUGLUTIDE\WATER
     Indication: Short-bowel syndrome
     Dosage: 2 ML, QD
     Route: 058
     Dates: start: 20230224

REACTIONS (15)
  - Vascular device infection [Unknown]
  - Thrombosis [Unknown]
  - Peripheral swelling [Unknown]
  - Weight increased [Unknown]
  - Stomach mass [Unknown]
  - Gastrointestinal scarring [Unknown]
  - Nausea [Unknown]
  - Abdominal pain upper [Unknown]
  - Hernia [Unknown]
  - Diarrhoea [Unknown]
  - Vomiting [Unknown]
  - Flatulence [Unknown]
  - Abdominal distension [Unknown]
  - Drug ineffective [Unknown]
  - Device leakage [Unknown]
